FAERS Safety Report 7549592-4 (Version None)
Quarter: 2011Q2

REPORT INFORMATION
  Report Type: 
  Country: None (occurrence: None)
  Receive Date: 20110615
  Receipt Date: 20110607
  Transmission Date: 20111010
  Serious: Yes (Death)
  Sender: FDA-Public Use
  Company Number: A0931503A

PATIENT
  Age: 65 Year
  Sex: Female

DRUGS (14)
  1. ZOLOFT [Concomitant]
  2. CRESTOR [Concomitant]
  3. MAGNESIUM SULFATE [Concomitant]
  4. WELCHOL [Concomitant]
  5. BUPROPION HCL [Concomitant]
  6. UNSPECIFIED MEDICATION [Concomitant]
  7. ASPIRIN [Concomitant]
  8. TYKERB [Suspect]
     Dosage: 250MG UNKNOWN
     Route: 048
     Dates: start: 20110218
  9. LYRICA [Concomitant]
  10. CALCIUM CARBONATE [Concomitant]
  11. ZOLPIDEM [Concomitant]
  12. OXYCODONE HCL [Concomitant]
  13. METOPROLOL TARTRATE [Concomitant]
  14. M.V.I. [Concomitant]

REACTIONS (1)
  - DEATH [None]
